FAERS Safety Report 8254375-6 (Version None)
Quarter: 2012Q2

REPORT INFORMATION
  Report Type: 
  Country: None (occurrence: None)
  Receive Date: 20120402
  Receipt Date: 20120323
  Transmission Date: 20120825
  Serious: No
  Sender: FDA-Public Use
  Company Number: US-AMGEN-USASP2012018952

PATIENT
  Age: 49 Year
  Sex: Female

DRUGS (2)
  1. ENBREL [Suspect]
     Indication: RHEUMATOID ARTHRITIS
     Dosage: 50 MG, QWK
     Dates: start: 20110302
  2. TREXALL [Concomitant]
     Dosage: 1 MG, UNK
     Dates: start: 20110201

REACTIONS (14)
  - NAUSEA [None]
  - DYSURIA [None]
  - CHONDROPATHY [None]
  - MUSCULOSKELETAL PAIN [None]
  - RHEUMATOID ARTHRITIS [None]
  - MICTURITION URGENCY [None]
  - BACK PAIN [None]
  - DRUG INEFFECTIVE [None]
  - ACTIVITIES OF DAILY LIVING IMPAIRED [None]
  - KIDNEY INFECTION [None]
  - BLADDER DISORDER [None]
  - POLLAKIURIA [None]
  - URETHRAL SPASM [None]
  - PAIN [None]
